FAERS Safety Report 14380480 (Version 1)
Quarter: 2018Q1

REPORT INFORMATION
  Report Type: Spontaneous
  Country: US (occurrence: US)
  Receive Date: 20180112
  Receipt Date: 20180112
  Transmission Date: 20180509
  Serious: No
  Sender: FDA-Public Use
  Company Number: None

PATIENT
  Age: 32 Year
  Sex: Female
  Weight: 48.99 kg

DRUGS (1)
  1. CIPROFLOXACIN. [Suspect]
     Active Substance: CIPROFLOXACIN
     Indication: URINARY TRACT INFECTION
     Dosage: 1 PILL BID ORAL
     Route: 048
     Dates: start: 20170209, end: 20170509

REACTIONS (10)
  - Pain [None]
  - Anxiety [None]
  - Paraesthesia [None]
  - Heart rate irregular [None]
  - Depression [None]
  - Feeling jittery [None]
  - Pain in extremity [None]
  - Muscle spasms [None]
  - Rash generalised [None]
  - Hypoaesthesia [None]

NARRATIVE: CASE EVENT DATE: 20170509
